FAERS Safety Report 9392049 (Version 1)
Quarter: 2013Q3

REPORT INFORMATION
  Report Type: Spontaneous
  Country: None (occurrence: None)
  Receive Date: 20130705
  Receipt Date: 20130705
  Transmission Date: 20140515
  Serious: Yes (Other)
  Sender: FDA-Public Use
  Company Number: PL-022513

PATIENT
  Age: 69 Year
  Sex: Male
  Weight: 80 kg

DRUGS (3)
  1. CHLORAMBUCIL (CHLORAMBUCIL) (UNKNOWN) [Suspect]
     Indication: B-CELL SMALL LYMPHOCYTIC LYMPHOMA
     Dates: start: 20100111, end: 20100222
  2. ALLOPURINOL [Concomitant]
  3. METOCARD (METOPROLOL) [Concomitant]

REACTIONS (2)
  - Neutropenia [None]
  - Pneumonia [None]
